FAERS Safety Report 18548018 (Version 1)
Quarter: 2020Q4

REPORT INFORMATION
  Report Type: Spontaneous
  Country: US (occurrence: US)
  Receive Date: 20201125
  Receipt Date: 20201125
  Transmission Date: 20210114
  Serious: No
  Sender: FDA-Public Use
  Company Number: US-PFIZER INC-2020461159

PATIENT
  Age: 71 Year
  Sex: Male

DRUGS (4)
  1. DICYCLOMINE [Suspect]
     Active Substance: DICYCLOMINE HYDROCHLORIDE
     Dosage: 10 MG
  2. XELJANZ [Suspect]
     Active Substance: TOFACITINIB CITRATE
     Dosage: 10 MG
  3. MESALAMINE. [Suspect]
     Active Substance: MESALAMINE
     Dosage: 4 MG
  4. OMEPRAZOLE. [Suspect]
     Active Substance: OMEPRAZOLE
     Dosage: 40 MG

REACTIONS (3)
  - Flushing [Unknown]
  - Discomfort [Unknown]
  - Tremor [Unknown]
